FAERS Safety Report 9746552 (Version 1)
Quarter: 2013Q4

REPORT INFORMATION
  Report Type: Spontaneous
  Country: US (occurrence: None)
  Receive Date: 20131209
  Receipt Date: 20131209
  Transmission Date: 20140711
  Serious: Yes (Other)
  Sender: FDA-Public Use
  Company Number: None

PATIENT
  Age: 60 Year
  Sex: Female

DRUGS (1)
  1. FORTEO [Suspect]
     Dosage: 20MCG, QD, SUBQ
     Dates: start: 20131002, end: 20131203

REACTIONS (3)
  - Musculoskeletal stiffness [None]
  - Bone pain [None]
  - Pain [None]
